FAERS Safety Report 7855231-5 (Version None)
Quarter: 2011Q4

REPORT INFORMATION
  Report Type: 
  Country: None (occurrence: None)
  Receive Date: 20111026
  Receipt Date: 20111024
  Transmission Date: 20120403
  Serious: Yes (Other)
  Sender: FDA-Public Use
  Company Number: DE-PFIZER INC-2011258457

PATIENT
  Age: 67 Year
  Sex: Male

DRUGS (2)
  1. VENLAFAXINE HYDROCHLORIDE [Suspect]
     Indication: PROPHYLAXIS
     Dosage: 150 MG, FREQUENCY UNKNOWN
  2. VENLAFAXINE HYDROCHLORIDE [Suspect]
     Dosage: 75 MG, FREQUENCY UNKNOWN

REACTIONS (3)
  - FALL [None]
  - SYNCOPE [None]
  - ABNORMAL DREAMS [None]
